FAERS Safety Report 17935136 (Version 1)
Quarter: 2020Q2

REPORT INFORMATION
  Report Type: Spontaneous
  Country: US (occurrence: US)
  Receive Date: 20200624
  Receipt Date: 20200624
  Transmission Date: 20200714
  Serious: No
  Sender: FDA-Public Use
  Company Number: US-PFIZER INC-2020241818

PATIENT
  Age: 63 Year
  Sex: Female

DRUGS (6)
  1. MISOPROSTOL. [Suspect]
     Active Substance: MISOPROSTOL
     Indication: CERVICAL DILATATION
     Dosage: UNK
  2. TYMLOS [Suspect]
     Active Substance: ABALOPARATIDE
     Indication: OSTEOPOROSIS POSTMENOPAUSAL
     Dosage: 80 UG, DAILY
     Route: 058
     Dates: start: 20190327
  3. TYMLOS [Suspect]
     Active Substance: ABALOPARATIDE
     Dosage: 80 UG, 1X/DAY
     Route: 058
     Dates: start: 20190401
  4. TYMLOS [Suspect]
     Active Substance: ABALOPARATIDE
     Dosage: UNK
     Dates: start: 20190402
  5. TYMLOS [Suspect]
     Active Substance: ABALOPARATIDE
     Dosage: UNK
     Dates: start: 20200401
  6. TYMLOS [Suspect]
     Active Substance: ABALOPARATIDE
     Dosage: 80 UG, 1X/DAY
     Route: 058
     Dates: start: 20190401

REACTIONS (5)
  - Erythema [Unknown]
  - Somnolence [Unknown]
  - Ear swelling [Unknown]
  - Product use in unapproved indication [Unknown]
  - Off label use [Unknown]
